FAERS Safety Report 8695917 (Version 2)
Quarter: 2013Q4

REPORT INFORMATION
  Report Type: Spontaneous
  Country: US (occurrence: US)
  Receive Date: 20120801
  Receipt Date: 20131106
  Transmission Date: 20140711
  Serious: Yes (Hospitalization, Other)
  Sender: FDA-Public Use
  Company Number: US-009507513-1207USA009996

PATIENT
  Age: 77 Year
  Sex: Female

DRUGS (9)
  1. ZOCOR [Suspect]
     Dosage: 40 MG, UNK
     Route: 048
  2. CIPROXIN [Suspect]
  3. FUROSEMIDE SODIUM [Concomitant]
     Dosage: 40 MG, UNK
  4. ASPIRIN [Concomitant]
     Dosage: 75 MG, UNK
  5. CIMETIDINE [Concomitant]
     Dosage: UNK UNK, QD
  6. PINDOLOL [Concomitant]
     Dosage: 2.5 MG, QD
  7. ISOSORBIDE MONONITRATE [Concomitant]
     Dosage: 20 MG, BID
  8. LEVOTHYROXINE SODIUM [Concomitant]
     Dosage: 100 MG, UNK
  9. NICORANDIL [Concomitant]
     Dosage: 10 MG, BID

REACTIONS (5)
  - Chromaturia [Unknown]
  - Rhabdomyolysis [Unknown]
  - Myalgia [Unknown]
  - Muscular weakness [Unknown]
  - Polymyositis [Unknown]
